FAERS Safety Report 7684119-8 (Version None)
Quarter: 2011Q3

REPORT INFORMATION
  Report Type: 
  Country: None (occurrence: None)
  Receive Date: 20110815
  Receipt Date: 20110705
  Transmission Date: 20111222
  Serious: Yes (Hospitalization, Other)
  Sender: FDA-Public Use
  Company Number: US-BAYER-201030401NA

PATIENT
  Age: 27 Year
  Sex: Female
  Weight: 70.295 kg

DRUGS (11)
  1. CELEXA [Concomitant]
     Dosage: 40 MG, QD
     Route: 048
  2. LORTAB [Concomitant]
     Indication: PAIN
     Dosage: UNK UNK, PRN
     Route: 048
  3. ACYCLOVIR [Concomitant]
     Dosage: 400 MG, UNK
     Dates: start: 20091101
  4. CITALOPRAM HYDROBROMIDE [Concomitant]
     Dosage: 40 MG, UNK
     Dates: start: 20100101
  5. CELEXA [Concomitant]
     Indication: DEPRESSION
     Dosage: UNK
     Dates: start: 20090101
  6. FLUCONAZOLE [Concomitant]
     Dosage: 150 MG, UNK
     Dates: start: 20091201
  7. ZITHROMAX [Concomitant]
     Route: 048
  8. YAZ [Suspect]
     Indication: PRODUCT USED FOR UNKNOWN INDICATION
     Route: 048
     Dates: start: 20081212
  9. PEPCID [Concomitant]
     Indication: DYSPEPSIA
     Dosage: 20 MG, PRN
     Route: 048
  10. NSAID'S [Concomitant]
  11. ARIXTRA [Concomitant]

REACTIONS (3)
  - HAEMOPTYSIS [None]
  - DEEP VEIN THROMBOSIS [None]
  - PULMONARY EMBOLISM [None]
